FAERS Safety Report 12647106 (Version 2)
Quarter: 2016Q3

REPORT INFORMATION
  Report Type: Report from Study
  Country: US (occurrence: US)
  Receive Date: 20160812
  Receipt Date: 20160921
  Transmission Date: 20161109
  Serious: No
  Sender: FDA-Public Use
  Company Number: US-AMGEN-USASL2016104243

PATIENT
  Age: 6 Year
  Sex: Female

DRUGS (3)
  1. ENBREL [Suspect]
     Active Substance: ETANERCEPT
     Indication: JUVENILE IDIOPATHIC ARTHRITIS
     Dosage: 0.3 ML, 2 TIMES/WK
     Route: 065
     Dates: start: 20140814
  2. ENBREL [Suspect]
     Active Substance: ETANERCEPT
     Dosage: 0.4 ML, 2 TIMES/WK
     Route: 065
  3. NAPROXEN. [Concomitant]
     Active Substance: NAPROXEN
     Dosage: HALF TABLET TID

REACTIONS (11)
  - Pain [Unknown]
  - Therapeutic response decreased [Unknown]
  - Fatigue [Unknown]
  - Swelling [Not Recovered/Not Resolved]
  - Musculoskeletal stiffness [Unknown]
  - Pyrexia [Unknown]
  - Malaise [Unknown]
  - Gait disturbance [Unknown]
  - Increased appetite [Unknown]
  - Viral infection [Unknown]
  - Poor quality sleep [Unknown]
